FAERS Safety Report 4777429-5 (Version None)
Quarter: 2005Q3

REPORT INFORMATION
  Report Type: 
  Country: None (occurrence: None)
  Receive Date: 20050923
  Receipt Date: 20050912
  Transmission Date: 20060218
  Serious: Yes (Death, Hospitalization)
  Sender: FDA-Public Use
  Company Number: FR-BRISTOL-MYERS SQUIBB COMPANY-13107552

PATIENT
  Age: 52 Year
  Sex: Male

DRUGS (4)
  1. DIDANOSINE [Suspect]
  2. LOPINAVIR + RITONAVIR [Suspect]
  3. LAMIVUDINE [Suspect]
  4. ZIDOVUDINE [Suspect]

REACTIONS (3)
  - IMMUNE RECONSTITUTION SYNDROME [None]
  - PROGRESSIVE MULTIFOCAL LEUKOENCEPHALOPATHY [None]
  - SEPTIC SHOCK [None]
